FAERS Safety Report 16791603 (Version 1)
Quarter: 2019Q3

REPORT INFORMATION
  Report Type: Report from Study
  Country: US (occurrence: US)
  Receive Date: 20190910
  Receipt Date: 20190910
  Transmission Date: 20191005
  Serious: Yes (Other)
  Sender: FDA-Public Use
  Company Number: US-GILEAD-2019-0426993

PATIENT
  Age: 70 Year
  Sex: Female

DRUGS (1)
  1. AMBRISENTAN [Suspect]
     Active Substance: AMBRISENTAN
     Indication: PRODUCT USED FOR UNKNOWN INDICATION
     Dosage: 5 MG
     Route: 065

REACTIONS (8)
  - Cataract [Not Recovered/Not Resolved]
  - Malaise [Not Recovered/Not Resolved]
  - Mental status changes [Not Recovered/Not Resolved]
  - Apparent death [Not Recovered/Not Resolved]
  - Blindness [Not Recovered/Not Resolved]
  - Renal disorder [Not Recovered/Not Resolved]
  - Eye haemorrhage [Unknown]
  - Gait inability [Not Recovered/Not Resolved]
